FAERS Safety Report 20157879 (Version 23)
Quarter: 2022Q2

REPORT INFORMATION
  Report Type: Report from Study
  Country: FR (occurrence: None)
  Receive Date: 20211207
  Receipt Date: 20220620
  Transmission Date: 20220721
  Serious: Yes (Hospitalization, Disabling)
  Sender: FDA-Public Use
  Company Number: FR-Eisai Medical Research-EC-2021-104410

PATIENT
  Age: 20 Year
  Sex: Female
  Weight: 55 kg

DRUGS (6)
  1. LENVATINIB [Suspect]
     Active Substance: LENVATINIB
     Indication: Chordoma
     Route: 048
     Dates: start: 20211019, end: 20211129
  2. LENVATINIB [Suspect]
     Active Substance: LENVATINIB
     Dosage: DOSE REDUCED
     Route: 048
     Dates: start: 20211208
  3. LAMALINE [Concomitant]
     Dates: start: 20210816
  4. ACETAMINOPHEN [Concomitant]
     Active Substance: ACETAMINOPHEN
     Dates: start: 20211018
  5. VOGALENE [Concomitant]
     Active Substance: METOPIMAZINE
     Dates: start: 20211018
  6. CEFIXIME [Concomitant]
     Active Substance: CEFIXIME
     Dates: start: 20211018, end: 20211021

REACTIONS (4)
  - Bronchitis [Recovered/Resolved]
  - Pneumonia aspiration [Recovered/Resolved]
  - Weight decreased [Recovered/Resolved]
  - Fatigue [Not Recovered/Not Resolved]

NARRATIVE: CASE EVENT DATE: 20211026
